FAERS Safety Report 18747311 (Version 1)
Quarter: 2021Q1

REPORT INFORMATION
  Report Type: Spontaneous
  Country: US (occurrence: US)
  Receive Date: 20210115
  Receipt Date: 20210115
  Transmission Date: 20210419
  Serious: No
  Sender: FDA-Public Use
  Company Number: US-ROCHE-2709740

PATIENT
  Sex: Female

DRUGS (1)
  1. PHESGO [Suspect]
     Active Substance: HYALURONIDASE-ZZXF\PERTUZUMAB\TRASTUZUMAB
     Indication: HER2 POSITIVE BREAST CANCER
     Dosage: 600MG PERTUZUMAB, 600MG TRASTUZUMAB AND 20,000 UNITS HYALURONIDASE SC FOR HER FIRST DOSE INSTEAD OF
     Route: 058
     Dates: start: 202010

REACTIONS (3)
  - Intentional product use issue [Unknown]
  - Off label use [Unknown]
  - No adverse event [Unknown]
